FAERS Safety Report 5140261-7 (Version None)
Quarter: 2006Q4

REPORT INFORMATION
  Report Type: 
  Country: None (occurrence: None)
  Receive Date: 20061026
  Receipt Date: 20061026
  Transmission Date: 20070319
  Serious: Yes (Hospitalization)
  Sender: FDA-Public Use
  Company Number: None

PATIENT
  Age: 51 Year

DRUGS (1)
  1. ENBREL [Suspect]
     Indication: RHEUMATOID ARTHRITIS
     Dosage: 50MG TWICE A WEEK SQ
     Route: 058
     Dates: start: 20051226, end: 20061012

REACTIONS (2)
  - CELLULITIS [None]
  - THERAPY NON-RESPONDER [None]
